FAERS Safety Report 10600443 (Version 1)
Quarter: 2014Q4

REPORT INFORMATION
  Report Type: Spontaneous
  Country: PL (occurrence: PL)
  Receive Date: 20141124
  Receipt Date: 20141124
  Transmission Date: 20150529
  Serious: Yes (Death, Other)
  Sender: FDA-Public Use
  Company Number: PL-ROCHE-1494217

PATIENT

DRUGS (1)
  1. ZELBORAF [Suspect]
     Active Substance: VEMURAFENIB
     Indication: MALIGNANT MELANOMA
     Route: 065

REACTIONS (9)
  - Photosensitivity reaction [Unknown]
  - Musculoskeletal pain [Unknown]
  - Hyperkeratosis [Unknown]
  - Rash pustular [Unknown]
  - Dry skin [Unknown]
  - Squamous cell carcinoma of skin [Unknown]
  - Keratoacanthoma [Unknown]
  - Pyrexia [Unknown]
  - Death [Fatal]
